FAERS Safety Report 9786060 (Version 1)
Quarter: 2013Q4

REPORT INFORMATION
  Report Type: Spontaneous
  Country: US (occurrence: None)
  Receive Date: 20131224
  Receipt Date: 20131224
  Transmission Date: 20140711
  Serious: Yes (Death)
  Sender: FDA-Public Use
  Company Number: UTC-042085

PATIENT
  Age: 57 Year
  Sex: Female
  Weight: 68.2 kg

DRUGS (2)
  1. TYVASO [Suspect]
     Indication: PULMONARY ARTERIAL HYPERTENSION
     Route: 055
     Dates: start: 20120912
  2. ADCIRCA (TADALAFIL) [Concomitant]

REACTIONS (1)
  - Death [None]
